FAERS Safety Report 12877769 (Version 1)
Quarter: 2016Q4

REPORT INFORMATION
  Report Type: Spontaneous
  Country: US (occurrence: US)
  Receive Date: 20161024
  Receipt Date: 20161024
  Transmission Date: 20170207
  Serious: No
  Sender: FDA-Public Use
  Company Number: US-PFIZER INC-2016494900

PATIENT
  Sex: Female

DRUGS (2)
  1. RELPAX [Suspect]
     Active Substance: ELETRIPTAN HYDROBROMIDE
     Dosage: UNK
  2. CELEBREX [Suspect]
     Active Substance: CELECOXIB
     Dosage: UNK

REACTIONS (2)
  - Abdominal discomfort [Unknown]
  - Malaise [Unknown]
